FAERS Safety Report 6412025-5 (Version None)
Quarter: 2009Q4

REPORT INFORMATION
  Report Type: 
  Country: None (occurrence: None)
  Receive Date: 20091023
  Receipt Date: 20091015
  Transmission Date: 20100525
  Serious: Yes (Life-Threatening)
  Sender: FDA-Public Use
  Company Number: JP-PFIZER INC-2009286998

PATIENT

DRUGS (2)
  1. AMLODIN [Suspect]
  2. TAKEPRON [Suspect]

REACTIONS (1)
  - COAGULOPATHY [None]
